FAERS Safety Report 10599319 (Version 2)
Quarter: 2015Q3

REPORT INFORMATION
  Report Type: Spontaneous
  Country: US (occurrence: US)
  Receive Date: 20141121
  Receipt Date: 20150909
  Transmission Date: 20151125
  Serious: No
  Sender: FDA-Public Use
  Company Number: US-GLAXOSMITHKLINE-US2014GSK021580

PATIENT
  Age: 67 Year
  Sex: Female

DRUGS (13)
  1. COMBIVENT [Concomitant]
     Active Substance: ALBUTEROL SULFATE\IPRATROPIUM BROMIDE
  2. DIGOXIN. [Concomitant]
     Active Substance: DIGOXIN
  3. ADVAIR DISKUS [Suspect]
     Active Substance: FLUTICASONE PROPIONATE\SALMETEROL XINAFOATE
     Indication: CHRONIC OBSTRUCTIVE PULMONARY DISEASE
     Dosage: 1 PUFF(S), BID
     Route: 055
  4. XANAX [Concomitant]
     Active Substance: ALPRAZOLAM
  5. IRON [Concomitant]
     Active Substance: IRON
  6. ADVAIR DISKUS [Suspect]
     Active Substance: FLUTICASONE PROPIONATE\SALMETEROL XINAFOATE
     Dosage: 1 PUFF(S), QD
     Route: 055
     Dates: start: 2005
  7. LOVASTATIN. [Concomitant]
     Active Substance: LOVASTATIN
  8. HYDROCODONE [Concomitant]
     Active Substance: HYDROCODONE
  9. ASPIRIN. [Concomitant]
     Active Substance: ASPIRIN
  10. WATER PILL [Concomitant]
     Active Substance: UNSPECIFIED INGREDIENT
  11. DILTIAZEM [Concomitant]
     Active Substance: DILTIAZEM
  12. PREDNISONE. [Concomitant]
     Active Substance: PREDNISONE
  13. LISINOPRIL. [Concomitant]
     Active Substance: LISINOPRIL

REACTIONS (5)
  - Intentional product use issue [Unknown]
  - Malaise [Not Recovered/Not Resolved]
  - Dizziness [Unknown]
  - Fatigue [Unknown]
  - Fall [Recovered/Resolved]

NARRATIVE: CASE EVENT DATE: 201401
